FAERS Safety Report 8425950-0 (Version None)
Quarter: 2012Q2

REPORT INFORMATION
  Report Type: 
  Country: None (occurrence: None)
  Receive Date: 20120604
  Receipt Date: 20120522
  Transmission Date: 20120825
  Serious: Yes (Hospitalization)
  Sender: FDA-Public Use
  Company Number: 7134636

PATIENT
  Sex: Female

DRUGS (1)
  1. LEVOTHYROXINE SODIUM [Suspect]
     Indication: HYPOTHYROIDISM

REACTIONS (8)
  - HEMIPARESIS [None]
  - ENCEPHALOPATHY [None]
  - HYPERREFLEXIA [None]
  - ANTI-AQUAPORIN-4 ANTIBODY [None]
  - ALTERED STATE OF CONSCIOUSNESS [None]
  - APHASIA [None]
  - MATERNAL EXPOSURE DURING PREGNANCY [None]
  - PARTIAL SEIZURES [None]
